FAERS Safety Report 16746961 (Version 1)
Quarter: 2019Q3

REPORT INFORMATION
  Report Type: Spontaneous
  Country: US (occurrence: US)
  Receive Date: 20190827
  Receipt Date: 20190827
  Transmission Date: 20191005
  Serious: No
  Sender: FDA-Public Use
  Company Number: US-SA-2019SA236105

PATIENT
  Age: 62 Year
  Sex: Female

DRUGS (1)
  1. PRALUENT [Suspect]
     Active Substance: ALIROCUMAB
     Indication: BLOOD CHOLESTEROL INCREASED
     Dosage: 75 MG, 1X
     Dates: start: 20190803

REACTIONS (8)
  - Muscle spasms [Unknown]
  - Bladder spasm [Unknown]
  - Head discomfort [Unknown]
  - Aphasia [Unknown]
  - Confusional state [Unknown]
  - Bone pain [Unknown]
  - Fungal infection [Unknown]
  - Dizziness [Unknown]

NARRATIVE: CASE EVENT DATE: 20190803
